FAERS Safety Report 11636226 (Version 3)
Quarter: 2016Q4

REPORT INFORMATION
  Report Type: Spontaneous
  Country: IN (occurrence: IN)
  Receive Date: 20151016
  Receipt Date: 20161201
  Transmission Date: 20170206
  Serious: Yes (Death, Hospitalization)
  Sender: FDA-Public Use
  Company Number: IN-SUN PHARMACEUTICAL INDUSTRIES LTD-2015R1-101091

PATIENT
  Sex: Male

DRUGS (1)
  1. VALPROIC ACID. [Suspect]
     Active Substance: VALPROIC ACID
     Indication: DYSKINESIA
     Dosage: 500 MG, SINGLE
     Route: 065

REACTIONS (4)
  - Mitochondrial toxicity [Unknown]
  - Renal failure [Fatal]
  - Somnolence [Unknown]
  - Myoglobinuria [Unknown]
